FAERS Safety Report 5028027-X (Version None)
Quarter: 2006Q2

REPORT INFORMATION
  Report Type: 
  Country: None (occurrence: None)
  Receive Date: 20060612
  Receipt Date: 20060607
  Transmission Date: 20061013
  Serious: Yes (Life-Threatening)
  Sender: FDA-Public Use
  Company Number: 200610683BYL

PATIENT
  Age: 70 Year
  Sex: Female
  Weight: 43 kg

DRUGS (3)
  1. CIPROFLOXACIN [Suspect]
     Indication: PNEUMONIA
     Dosage: 300 MG QD INTRAVENOUS; 300 MG BID INTRAVENOUS
     Route: 042
     Dates: start: 20060524
  2. CIPROFLOXACIN [Suspect]
     Indication: PNEUMONIA
     Dosage: 300 MG QD INTRAVENOUS; 300 MG BID INTRAVENOUS
     Route: 042
     Dates: start: 20060525
  3. PRODIF [Concomitant]

REACTIONS (2)
  - BLOOD GLUCOSE INCREASED [None]
  - HYPOGLYCAEMIA [None]
